FAERS Safety Report 10310030 (Version 3)
Quarter: 2016Q2

REPORT INFORMATION
  Report Type: Report from Study
  Country: US (occurrence: US)
  Receive Date: 20140717
  Receipt Date: 20160614
  Transmission Date: 20160815
  Serious: Yes (Other)
  Sender: FDA-Public Use
  Company Number: PHEH2014US014176

PATIENT
  Sex: Female

DRUGS (2)
  1. TEGRETOL [Suspect]
     Active Substance: CARBAMAZEPINE
     Indication: PRODUCT USED FOR UNKNOWN INDICATION
     Dosage: 200 MG, UNK
     Route: 048
     Dates: start: 19800718
  2. CARBAMAZEPINE. [Suspect]
     Active Substance: CARBAMAZEPINE
     Indication: PRODUCT USED FOR UNKNOWN INDICATION
     Route: 065

REACTIONS (6)
  - Seizure [Unknown]
  - Feeling abnormal [Unknown]
  - Memory impairment [Unknown]
  - Visual impairment [Unknown]
  - Hypoacusis [Unknown]
  - Drug interaction [Unknown]

NARRATIVE: CASE EVENT DATE: 2002
